FAERS Safety Report 8190171-6 (Version None)
Quarter: 2012Q1

REPORT INFORMATION
  Report Type: 
  Country: None (occurrence: None)
  Receive Date: 20120307
  Receipt Date: 20120227
  Transmission Date: 20120608
  Serious: Yes (Other)
  Sender: FDA-Public Use
  Company Number: JP-AMGEN-JPNCT2011008924

PATIENT
  Age: 75 Year
  Sex: Male
  Weight: 67 kg

DRUGS (10)
  1. MYSER [Concomitant]
     Dosage: UNK
     Route: 062
  2. PANITUMUMAB [Suspect]
     Indication: COLORECTAL CANCER
     Dosage: 6 MG/KG, Q2WK
     Route: 041
     Dates: start: 20100922, end: 20101208
  3. LOCOID [Concomitant]
     Dosage: UNK
     Route: 062
  4. HIRUDOID [Concomitant]
     Dosage: UNK
     Route: 062
  5. AMARYL [Concomitant]
     Dosage: UNK
     Route: 048
  6. CORTICOSTEROIDS [Concomitant]
     Indication: PROPHYLAXIS
     Dosage: UNK
     Route: 065
  7. ALLEGRA [Concomitant]
     Dosage: UNK
     Route: 048
  8. PANITUMUMAB [Suspect]
     Dosage: 6 MG/KG, Q2WK
     Route: 041
     Dates: start: 20110105, end: 20110105
  9. VALTREX [Concomitant]
     Dosage: UNK
     Route: 048
  10. ANTIHISTAMINES [Concomitant]
     Indication: PROPHYLAXIS
     Dosage: UNK
     Route: 065

REACTIONS (2)
  - HERPES VIRUS INFECTION [None]
  - RASH [None]
